FAERS Safety Report 10099952 (Version 1)
Quarter: 2014Q2

REPORT INFORMATION
  Report Type: Spontaneous
  Country: NL (occurrence: NL)
  Receive Date: 20140423
  Receipt Date: 20140423
  Transmission Date: 20141212
  Serious: Yes (Other)
  Sender: FDA-Public Use
  Company Number: NL-ELI_LILLY_AND_COMPANY-NL201404006212

PATIENT
  Sex: 0

DRUGS (2)
  1. TOBRAMYCIN [Suspect]
     Indication: FEBRILE NEUTROPENIA
     Route: 042
  2. PIPERACILLIN [Suspect]
     Indication: FEBRILE NEUTROPENIA
     Route: 042

REACTIONS (1)
  - Renal failure [Unknown]
